FAERS Safety Report 23863371 (Version 5)
Quarter: 2024Q3

REPORT INFORMATION
  Report Type: Spontaneous
  Country: GB (occurrence: GB)
  Receive Date: 20240516
  Receipt Date: 20240709
  Transmission Date: 20241017
  Serious: Yes (Hospitalization, Other)
  Sender: CSL BEHRING
  Company Number: GB-BEH-2024172198

PATIENT
  Age: 79 Year
  Sex: Male

DRUGS (4)
  1. PRIVIGEN [Suspect]
     Active Substance: HUMAN IMMUNOGLOBULIN G
     Indication: Product used for unknown indication
     Dosage: 60 G, QMT
     Route: 042
     Dates: start: 20211213
  2. PRIVIGEN [Suspect]
     Active Substance: HUMAN IMMUNOGLOBULIN G
     Indication: Chronic inflammatory demyelinating polyradiculoneuropathy
     Dosage: UNK
     Route: 042
     Dates: start: 20240503
  3. PRIVIGEN [Suspect]
     Active Substance: HUMAN IMMUNOGLOBULIN G
     Dosage: 60 MG, QMT
     Route: 042
     Dates: start: 20240504
  4. PRIVIGEN [Suspect]
     Active Substance: HUMAN IMMUNOGLOBULIN G
     Dosage: 60 G, QMT
     Route: 042

REACTIONS (11)
  - Generalised tonic-clonic seizure [Recovering/Resolving]
  - Petit mal epilepsy [Recovering/Resolving]
  - Pneumonia [Recovered/Resolved]
  - Poor venous access [Not Recovered/Not Resolved]
  - Wrong technique in product usage process [Not Recovered/Not Resolved]
  - Injection site swelling [Unknown]
  - Blood pressure increased [Recovered/Resolved]
  - Body temperature decreased [Unknown]
  - Oxygen saturation decreased [Unknown]
  - Pleural effusion [Recovered/Resolved]
  - Dyspnoea [Recovered/Resolved]

NARRATIVE: CASE EVENT DATE: 20240503
